FAERS Safety Report 10448183 (Version 1)
Quarter: 2014Q3

REPORT INFORMATION
  Report Type: Spontaneous
  Country: US (occurrence: US)
  Receive Date: 20140911
  Receipt Date: 20140911
  Transmission Date: 20150326
  Serious: Yes (Life-Threatening, Hospitalization, Other)
  Sender: FDA-Public Use
  Company Number: US-B.I. PHARMACEUTICALS,INC./RIDGEFIELD-2014-BI-42374BP

PATIENT
  Age: 81 Year
  Sex: Male
  Weight: 72.5 kg

DRUGS (14)
  1. PRADAXA [Suspect]
     Active Substance: DABIGATRAN ETEXILATE MESYLATE
     Indication: PULMONARY EMBOLISM
     Dosage: 75 MG
     Route: 048
     Dates: end: 20121005
  2. SUBOXONE [Concomitant]
     Active Substance: BUPRENORPHINE HYDROCHLORIDE\NALOXONE HYDROCHLORIDE
     Indication: BACK PAIN
     Dosage: 2 ANZ
     Route: 060
  3. ISOSORBIDE MONONITRATE. [Concomitant]
     Active Substance: ISOSORBIDE MONONITRATE
     Indication: PRODUCT USED FOR UNKNOWN INDICATION
     Dosage: 30 MG
     Route: 048
  4. FLOMAX [Concomitant]
     Active Substance: TAMSULOSIN HYDROCHLORIDE
     Indication: PRODUCT USED FOR UNKNOWN INDICATION
     Dosage: 0.4 MG
     Route: 065
  5. XANAX [Concomitant]
     Active Substance: ALPRAZOLAM
     Indication: ANXIETY
     Dosage: DOSE PER APPLICATION: 1-2 TABLETS; STRENGTH: 0.25 MG
     Route: 065
  6. CARDIZEM CD [Concomitant]
     Active Substance: DILTIAZEM HYDROCHLORIDE
     Indication: PRODUCT USED FOR UNKNOWN INDICATION
     Dosage: 120 MG
     Route: 048
  7. LIPITOR [Concomitant]
     Active Substance: ATORVASTATIN CALCIUM
     Indication: PRODUCT USED FOR UNKNOWN INDICATION
     Dosage: 40 MG
     Route: 048
  8. METOPROLOL [Concomitant]
     Active Substance: METOPROLOL
     Indication: PRODUCT USED FOR UNKNOWN INDICATION
     Dosage: 50 MG
     Route: 048
  9. PEPCID [Concomitant]
     Active Substance: FAMOTIDINE
     Indication: GASTROOESOPHAGEAL REFLUX DISEASE
     Route: 065
  10. NIASPAN ER [Concomitant]
     Active Substance: NIACIN
     Indication: PRODUCT USED FOR UNKNOWN INDICATION
     Dosage: 500 MG
     Route: 048
  11. SEROQUEL [Concomitant]
     Active Substance: QUETIAPINE FUMARATE
     Indication: PRODUCT USED FOR UNKNOWN INDICATION
     Dosage: 12.5 MG
     Route: 065
  12. LOPID [Concomitant]
     Active Substance: GEMFIBROZIL
     Indication: PRODUCT USED FOR UNKNOWN INDICATION
     Dosage: 600 MG
     Route: 048
  13. ARICEPT [Concomitant]
     Active Substance: DONEPEZIL HYDROCHLORIDE
     Indication: DEMENTIA
     Dosage: 10 MG
     Route: 048
  14. MS CONTIN [Concomitant]
     Active Substance: MORPHINE SULFATE
     Indication: PRODUCT USED FOR UNKNOWN INDICATION
     Dosage: 45 MG
     Route: 048

REACTIONS (11)
  - Coagulopathy [Unknown]
  - Gastrointestinal haemorrhage [Unknown]
  - Gastritis [Unknown]
  - Hypokalaemia [Unknown]
  - Hypocalcaemia [Unknown]
  - Renal failure acute [Recovered/Resolved]
  - Haemorrhagic anaemia [Unknown]
  - Urinary tract infection pseudomonal [Recovered/Resolved]
  - Sepsis [Recovered/Resolved]
  - Oesophagitis [Unknown]
  - Hypotension [Unknown]

NARRATIVE: CASE EVENT DATE: 201210
